FAERS Safety Report 8419057 (Version 2)
Quarter: 2016Q2

REPORT INFORMATION
  Report Type: Other
  Country: JP (occurrence: JP)
  Receive Date: 20120221
  Receipt Date: 20160428
  Transmission Date: 20160815
  Serious: Yes (Hospitalization, Other)
  Sender: FDA-Public Use
  Company Number: JP-ACTELION-A-CH2012-60959

PATIENT
  Age: 23 Year
  Sex: Male

DRUGS (4)
  1. TADALAFIL [Concomitant]
     Active Substance: TADALAFIL
  2. TRACLEER [Suspect]
     Active Substance: BOSENTAN
     Indication: PULMONARY ARTERIAL HYPERTENSION
     Dosage: UNK
     Route: 048
  3. OXYGEN. [Concomitant]
     Active Substance: OXYGEN
  4. BERAPROST [Concomitant]
     Active Substance: BERAPROST

REACTIONS (10)
  - Pulmonary arterial hypertension [Unknown]
  - Disease progression [Unknown]
  - Tricuspid valve incompetence [Unknown]
  - Exercise test abnormal [Unknown]
  - Oedema [Unknown]
  - Brain natriuretic peptide increased [Unknown]
  - Right ventricular failure [Unknown]
  - Lung transplant [Unknown]
  - Left ventricular failure [Unknown]
  - Acute kidney injury [Unknown]
